FAERS Safety Report 4852990-0 (Version None)
Quarter: 2005Q4

REPORT INFORMATION
  Report Type: 
  Country: None (occurrence: None)
  Receive Date: 20051214
  Receipt Date: 20051129
  Transmission Date: 20060501
  Serious: Yes (Other)
  Sender: FDA-Public Use
  Company Number: GBWYE188029NOV05

PATIENT
  Age: 47 Year
  Sex: Female

DRUGS (2)
  1. ENBREL [Suspect]
     Indication: DRUG USE FOR UNKNOWN INDICATION
     Dosage: 25MG FREQUENCY UNKNOWN
     Route: 058
     Dates: start: 20050228
  2. PARACETAMOL [Concomitant]
     Dosage: 2 X 500MG AS NEEDED
     Route: 048

REACTIONS (3)
  - MASS [None]
  - PAIN [None]
  - SYSTEMIC LUPUS ERYTHEMATOSUS [None]
